FAERS Safety Report 21483047 (Version 1)
Quarter: 2022Q4

REPORT INFORMATION
  Report Type: Spontaneous
  Country: VN (occurrence: None)
  Receive Date: 20221020
  Receipt Date: 20221020
  Transmission Date: 20230112
  Serious: Yes (Life-Threatening, Hospitalization)
  Sender: FDA-Public Use
  Company Number: 2022A349814

PATIENT

DRUGS (1)
  1. FASLODEX [Suspect]
     Active Substance: FULVESTRANT
     Indication: Breast cancer
     Route: 030

REACTIONS (4)
  - Acute hepatic failure [Unknown]
  - Hepatic enzyme increased [Not Recovered/Not Resolved]
  - Blood bilirubin increased [Unknown]
  - Thrombocytopenia [Unknown]
